FAERS Safety Report 7558034-4 (Version None)
Quarter: 2011Q2

REPORT INFORMATION
  Report Type: 
  Country: None (occurrence: None)
  Receive Date: 20110620
  Receipt Date: 20110608
  Transmission Date: 20111010
  Serious: Yes (Other)
  Sender: FDA-Public Use
  Company Number: PHHY2011JP50851

PATIENT
  Age: 28 Year
  Sex: Female

DRUGS (3)
  1. MIDAZOLAM HCL [Suspect]
     Dosage: UNK
  2. PROPOFOL [Suspect]
     Dosage: UNK
  3. FLUMAZENIL [Suspect]
     Dosage: 0.2 MG, UNK
     Route: 042

REACTIONS (8)
  - HYPERVENTILATION [None]
  - SLEEP TALKING [None]
  - UNRESPONSIVE TO STIMULI [None]
  - RESPIRATORY RATE INCREASED [None]
  - ASTHENIA [None]
  - INCOHERENT [None]
  - CONVULSION [None]
  - DEPRESSED LEVEL OF CONSCIOUSNESS [None]
